FAERS Safety Report 24991320 (Version 1)
Quarter: 2025Q1

REPORT INFORMATION
  Report Type: Spontaneous
  Country: US (occurrence: None)
  Receive Date: 20250220
  Receipt Date: 20250220
  Transmission Date: 20250409
  Serious: Yes (Hospitalization, Other)
  Sender: FDA-CTU
  Company Number: None

PATIENT
  Age: 83 Year
  Sex: Female
  Weight: 68.5 kg

DRUGS (1)
  1. CEFTRIAXONE [Suspect]
     Active Substance: CEFTRIAXONE
     Indication: Urinary tract infection
     Route: 042
     Dates: start: 20241018, end: 20241018

REACTIONS (5)
  - Bradycardia [None]
  - Pulseless electrical activity [None]
  - Cardio-respiratory arrest [None]
  - Dyspnoea [None]
  - Immediate post-injection reaction [None]

NARRATIVE: CASE EVENT DATE: 20241018
